FAERS Safety Report 8299334 (Version 5)
Quarter: 2013Q1

REPORT INFORMATION
  Report Type: Report from Study
  Country: JP (occurrence: JP)
  Receive Date: 20111219
  Receipt Date: 20130219
  Transmission Date: 20140127
  Serious: Yes (Hospitalization, Other)
  Sender: FDA-Public Use
  Company Number: JP-AMGEN-JPNCT2011067293

PATIENT
  Age: 77 Year
  Sex: Male
  Weight: 47 kg

DRUGS (12)
  1. PANITUMUMAB [Suspect]
     Indication: COLORECTAL CANCER
     Dosage: 324 MG, Q2WK
     Route: 041
     Dates: start: 20110510, end: 20111206
  2. ERBITUX [Suspect]
     Indication: COLORECTAL CANCER
     Dosage: 400 MG, QWK
     Route: 041
     Dates: start: 20100805, end: 20110502
  3. ELPLAT [Suspect]
     Indication: COLON CANCER
     Dosage: 100 MG, Q2WK
     Route: 041
     Dates: start: 20090916, end: 20111014
  4. ELPLAT [Suspect]
     Indication: COLORECTAL CANCER
  5. TS-1 [Suspect]
     Indication: COLON CANCER
     Dosage: 80 MG, UNK
     Route: 048
     Dates: start: 20111108, end: 20111122
  6. TS-1 [Suspect]
     Indication: COLORECTAL CANCER
  7. 5-FU [Concomitant]
     Indication: COLON CANCER
     Dosage: 2100 MG, Q2WK
     Route: 041
     Dates: start: 20090916, end: 20111014
  8. 5-FU [Concomitant]
     Indication: COLORECTAL CANCER
  9. LEVOFOLINATE [Concomitant]
     Indication: COLON CANCER
     Dosage: 230 MG, Q2WK
     Route: 041
     Dates: start: 20090916, end: 20111014
  10. LEVOFOLINATE [Concomitant]
     Indication: COLORECTAL CANCER
  11. CAMPTO [Concomitant]
     Indication: COLON CANCER
     Dosage: 100 MG, Q2WK
     Route: 041
     Dates: start: 20100420, end: 20111122
  12. CAMPTO [Concomitant]
     Indication: COLORECTAL CANCER

REACTIONS (10)
  - Tetany [Recovering/Resolving]
  - Hypomagnesaemia [Not Recovered/Not Resolved]
  - Hypocalcaemia [Not Recovered/Not Resolved]
  - Decreased appetite [Recovering/Resolving]
  - Stomatitis [Recovering/Resolving]
  - Diarrhoea [Recovering/Resolving]
  - Hypoalbuminaemia [Unknown]
  - Hypoaesthesia [Unknown]
  - Dermatitis acneiform [Unknown]
  - Paronychia [Unknown]
